FAERS Safety Report 20939557 (Version 1)
Quarter: 2022Q2

REPORT INFORMATION
  Report Type: Report from Study
  Country: TR (occurrence: TR)
  Receive Date: 20220609
  Receipt Date: 20220609
  Transmission Date: 20220721
  Serious: Yes (Congenital Anomaly)
  Sender: FDA-Public Use
  Company Number: TR-CURIUM-2022000346

PATIENT

DRUGS (1)
  1. SODIUM IODIDE I-131 [Suspect]
     Active Substance: SODIUM IODIDE I-131
     Indication: Product used for unknown indication
     Route: 050

REACTIONS (1)
  - Congenital central nervous system anomaly [Not Recovered/Not Resolved]
